FAERS Safety Report 25191064 (Version 1)
Quarter: 2025Q2

REPORT INFORMATION
  Report Type: Spontaneous
  Country: GB (occurrence: GB)
  Receive Date: 20250411
  Receipt Date: 20250411
  Transmission Date: 20250716
  Serious: Yes (Other)
  Sender: MYLAN
  Company Number: None

PATIENT
  Sex: Female

DRUGS (4)
  1. ROCURONIUM [Suspect]
     Active Substance: ROCURONIUM BROMIDE
     Indication: Product used for unknown indication
  2. ROCURONIUM [Suspect]
     Active Substance: ROCURONIUM BROMIDE
     Route: 065
  3. ROCURONIUM [Suspect]
     Active Substance: ROCURONIUM BROMIDE
     Route: 065
  4. ROCURONIUM [Suspect]
     Active Substance: ROCURONIUM BROMIDE

REACTIONS (4)
  - Hypotension [Recovered/Resolved]
  - Tachycardia [Recovered/Resolved]
  - Tryptase increased [Unknown]
  - Rash [Unknown]

NARRATIVE: CASE EVENT DATE: 20221119
